FAERS Safety Report 5921749-5 (Version None)
Quarter: 2008Q4

REPORT INFORMATION
  Report Type: 
  Country: None (occurrence: None)
  Receive Date: 20081016
  Receipt Date: 20081016
  Transmission Date: 20090506
  Serious: Yes (Other)
  Sender: FDA-Public Use
  Company Number: None

PATIENT
  Age: 46 Year
  Sex: Female
  Weight: 106.5953 kg

DRUGS (2)
  1. AMANTADINE HCL [Suspect]
     Indication: COGNITIVE DISORDER
     Dosage: THERAPEUTIC DOSE QD PO
     Route: 048
     Dates: start: 20030610, end: 20061215
  2. AMANTADINE HCL [Suspect]
     Indication: SYSTEMIC LUPUS ERYTHEMATOSUS
     Dosage: THERAPEUTIC DOSE QD PO
     Route: 048
     Dates: start: 20030610, end: 20061215

REACTIONS (2)
  - CONFUSIONAL STATE [None]
  - CONTRAINDICATION TO MEDICAL TREATMENT [None]
